FAERS Safety Report 6853071-7 (Version None)
Quarter: 2010Q3

REPORT INFORMATION
  Report Type: 
  Country: None (occurrence: None)
  Receive Date: 20100717
  Receipt Date: 20071129
  Transmission Date: 20110219
  Serious: No
  Sender: FDA-Public Use
  Company Number: US-PFIZER INC-2007101794

PATIENT
  Age: 38 Year
  Sex: Female
  Weight: 71.363 kg

DRUGS (2)
  1. CHANTIX [Suspect]
     Indication: SMOKING CESSATION THERAPY
     Route: 048
     Dates: start: 20071115
  2. ZANTAC [Concomitant]
     Indication: DYSPEPSIA

REACTIONS (2)
  - NAUSEA [None]
  - VOMITING [None]
